FAERS Safety Report 23490202 (Version 1)
Quarter: 2024Q1

REPORT INFORMATION
  Report Type: Spontaneous
  Country: US (occurrence: None)
  Receive Date: 20240206
  Receipt Date: 20240206
  Transmission Date: 20240410
  Serious: No
  Sender: FDA-Public Use
  Company Number: US-ROCHE-3449076

PATIENT

DRUGS (1)
  1. XOLAIR [Suspect]
     Active Substance: OMALIZUMAB
     Indication: Product used for unknown indication
     Route: 065

REACTIONS (6)
  - Product dose omission issue [Unknown]
  - Manufacturing production issue [Unknown]
  - Product quality issue [Unknown]
  - Product physical issue [Unknown]
  - Treatment delayed [Unknown]
  - No adverse event [Unknown]

NARRATIVE: CASE EVENT DATE: 20231016
